FAERS Safety Report 18596219 (Version 3)
Quarter: 2021Q2

REPORT INFORMATION
  Report Type: Spontaneous
  Country: US (occurrence: US)
  Receive Date: 20201209
  Receipt Date: 20210603
  Transmission Date: 20210717
  Serious: No
  Sender: FDA-Public Use
  Company Number: US-PFIZER INC-2020484276

PATIENT
  Age: 64 Year
  Sex: Female

DRUGS (3)
  1. IBRANCE [Suspect]
     Active Substance: PALBOCICLIB
     Indication: BREAST CANCER FEMALE
     Dosage: 125 MG, CYCLIC (X 21D THEN 7 D OFF)
     Route: 048
     Dates: start: 20201114
  2. IBRANCE [Suspect]
     Active Substance: PALBOCICLIB
     Indication: IMMUNISATION
     Dosage: 125 MG
     Dates: start: 20201113
  3. IBRANCE [Suspect]
     Active Substance: PALBOCICLIB
     Indication: ESSENTIAL HYPERTENSION

REACTIONS (5)
  - Neoplasm progression [Not Recovered/Not Resolved]
  - Product dose omission issue [Unknown]
  - Abdominal distension [Not Recovered/Not Resolved]
  - Constipation [Not Recovered/Not Resolved]
  - Flatulence [Not Recovered/Not Resolved]

NARRATIVE: CASE EVENT DATE: 2020
